FAERS Safety Report 4696730-7 (Version None)
Quarter: 2005Q2

REPORT INFORMATION
  Report Type: 
  Country: None (occurrence: None)
  Receive Date: 20050620
  Receipt Date: 20050606
  Transmission Date: 20051028
  Serious: Yes (Other)
  Sender: FDA-Public Use
  Company Number: HQWYE975309MAR05

PATIENT
  Age: 51 Year
  Sex: Female
  Weight: 67.19 kg

DRUGS (23)
  1. EFFEXOR XR [Suspect]
     Indication: ANXIETY
     Dosage: SEE IMAGE
     Route: 048
     Dates: start: 20050101, end: 20050101
  2. EFFEXOR XR [Suspect]
     Indication: DEPRESSION
     Dosage: SEE IMAGE
     Route: 048
     Dates: start: 20050101, end: 20050101
  3. EFFEXOR XR [Suspect]
     Indication: ANXIETY
     Dosage: SEE IMAGE
     Route: 048
     Dates: start: 20050427, end: 20050101
  4. EFFEXOR XR [Suspect]
     Indication: DEPRESSION
     Dosage: SEE IMAGE
     Route: 048
     Dates: start: 20050427, end: 20050101
  5. EFFEXOR XR [Suspect]
     Indication: ANXIETY
     Dosage: SEE IMAGE
     Route: 048
     Dates: start: 20050513, end: 20050101
  6. EFFEXOR XR [Suspect]
     Indication: DEPRESSION
     Dosage: SEE IMAGE
     Route: 048
     Dates: start: 20050513, end: 20050101
  7. EFFEXOR XR [Suspect]
     Indication: ANXIETY
     Dosage: SEE IMAGE
     Route: 048
     Dates: start: 20050301, end: 20050301
  8. EFFEXOR XR [Suspect]
     Indication: DEPRESSION
     Dosage: SEE IMAGE
     Route: 048
     Dates: start: 20050301, end: 20050301
  9. EFFEXOR XR [Suspect]
     Indication: ANXIETY
     Dosage: SEE IMAGE
     Route: 048
     Dates: end: 20050301
  10. EFFEXOR XR [Suspect]
     Indication: DEPRESSION
     Dosage: SEE IMAGE
     Route: 048
     Dates: end: 20050301
  11. EFFEXOR XR [Suspect]
     Indication: ANXIETY
     Dosage: SEE IMAGE
     Route: 048
     Dates: start: 20050301, end: 20050426
  12. EFFEXOR XR [Suspect]
     Indication: DEPRESSION
     Dosage: SEE IMAGE
     Route: 048
     Dates: start: 20050301, end: 20050426
  13. EFFEXOR XR [Suspect]
     Indication: ANXIETY
     Dosage: SEE IMAGE
     Route: 048
     Dates: start: 20050101, end: 20050428
  14. EFFEXOR XR [Suspect]
     Indication: DEPRESSION
     Dosage: SEE IMAGE
     Route: 048
     Dates: start: 20050101, end: 20050428
  15. EFFEXOR XR [Suspect]
     Indication: ANXIETY
     Dosage: SEE IMAGE
     Route: 048
     Dates: start: 20050429, end: 20050505
  16. EFFEXOR XR [Suspect]
     Indication: DEPRESSION
     Dosage: SEE IMAGE
     Route: 048
     Dates: start: 20050429, end: 20050505
  17. EFFEXOR XR [Suspect]
     Indication: ANXIETY
     Dosage: SEE IMAGE
     Route: 048
     Dates: start: 20050506, end: 20050512
  18. EFFEXOR XR [Suspect]
     Indication: DEPRESSION
     Dosage: SEE IMAGE
     Route: 048
     Dates: start: 20050506, end: 20050512
  19. EFFEXOR XR [Suspect]
     Indication: ANXIETY
     Dosage: SEE IMAGE
     Route: 048
     Dates: start: 20040701
  20. EFFEXOR XR [Suspect]
     Indication: DEPRESSION
     Dosage: SEE IMAGE
     Route: 048
     Dates: start: 20040701
  21. EFFEXOR XR [Suspect]
     Indication: ANXIETY
     Dosage: SEE IMAGE
     Route: 048
     Dates: start: 20050101
  22. EFFEXOR XR [Suspect]
     Indication: DEPRESSION
     Dosage: SEE IMAGE
     Route: 048
     Dates: start: 20050101
  23. LEVOXYL [Concomitant]

REACTIONS (38)
  - APATHY [None]
  - ARTHRALGIA [None]
  - ASTHENIA [None]
  - BACK PAIN [None]
  - BLOOD CHOLESTEROL INCREASED [None]
  - BLOOD PRESSURE INCREASED [None]
  - CONDITION AGGRAVATED [None]
  - CRYING [None]
  - DIARRHOEA [None]
  - DIZZINESS [None]
  - DRUG DEPENDENCE [None]
  - DRUG INEFFECTIVE [None]
  - DRUG WITHDRAWAL SYNDROME [None]
  - EAR DISCOMFORT [None]
  - FAT TISSUE INCREASED [None]
  - FEELING ABNORMAL [None]
  - FLANK PAIN [None]
  - FLUID RETENTION [None]
  - HEADACHE [None]
  - HEART RATE INCREASED [None]
  - HEPATIC PAIN [None]
  - HOT FLUSH [None]
  - INCORRECT DOSE ADMINISTERED [None]
  - INFLUENZA LIKE ILLNESS [None]
  - LAZINESS [None]
  - MIGRAINE [None]
  - MULTI-ORGAN DISORDER [None]
  - NAUSEA [None]
  - PHOTOPSIA [None]
  - POLLAKIURIA [None]
  - SOMNOLENCE [None]
  - THERAPEUTIC RESPONSE UNEXPECTED [None]
  - THYROID FUNCTION TEST ABNORMAL [None]
  - TINNITUS [None]
  - VERTIGO [None]
  - VOMITING [None]
  - WEIGHT INCREASED [None]
  - WEIGHT LOSS POOR [None]
